FAERS Safety Report 24614654 (Version 5)
Quarter: 2025Q1

REPORT INFORMATION
  Report Type: Spontaneous
  Country: US (occurrence: US)
  Receive Date: 20241113
  Receipt Date: 20250121
  Transmission Date: 20250409
  Serious: Yes (Other)
  Sender: PFIZER
  Company Number: US-PFIZER INC-PV202400146430

PATIENT
  Age: 65 Year
  Sex: Female

DRUGS (2)
  1. TUKYSA [Suspect]
     Active Substance: TUCATINIB
     Dosage: 50 MG; 2 TABLETS TWICE DAILY AND TUKYSA 150 MG; 2 TABLETS TWICE DAILY
  2. TUKYSA [Suspect]
     Active Substance: TUCATINIB
     Dosage: 150MG TAKE 1 TABLET TWICE A DAY, 50MG TAKE 2 TABLETS TWICE A DAY (250 MG TOTAL DOSE BID)
     Route: 048
     Dates: end: 20241205

REACTIONS (4)
  - Limb operation [Unknown]
  - Blood bilirubin increased [Unknown]
  - Gait disturbance [Unknown]
  - Off label use [Unknown]
